FAERS Safety Report 5874196-9 (Version None)
Quarter: 2008Q3

REPORT INFORMATION
  Report Type: 
  Country: None (occurrence: None)
  Receive Date: 20080908
  Receipt Date: 20080902
  Transmission Date: 20090109
  Serious: Yes (Other)
  Sender: FDA-Public Use
  Company Number: DK-ABBOTT-08P-044-0462372-00

PATIENT
  Sex: Female
  Weight: 50 kg

DRUGS (6)
  1. ZEMPLAR [Suspect]
     Indication: SECONDARY HYPERTHYROIDISM
     Dosage: 5 MCG, 3 TIMES A WEEK DURING DIALYSIS
     Route: 042
     Dates: start: 20080519, end: 20080521
  2. ZEMPLAR [Suspect]
     Dates: start: 20080109
  3. VERAPAMIL [Concomitant]
     Indication: HYPERTENSION
  4. SODIUM BICARBONATE [Concomitant]
     Indication: DRUG USE FOR UNKNOWN INDICATION
  5. LANSOPRAZOLE [Concomitant]
     Indication: GASTRIC ULCER
     Dosage: 30 MG DAILY
  6. POTASSIUM CHLORIDE [Concomitant]
     Indication: MINERAL SUPPLEMENTATION

REACTIONS (1)
  - DIARRHOEA [None]
